FAERS Safety Report 7478199-2 (Version None)
Quarter: 2011Q2

REPORT INFORMATION
  Report Type: 
  Country: None (occurrence: None)
  Receive Date: 20110513
  Receipt Date: 20110502
  Transmission Date: 20111010
  Serious: Yes (Other)
  Sender: FDA-Public Use
  Company Number: PHHY2011US19228

PATIENT
  Sex: Male
  Weight: 96.599 kg

DRUGS (6)
  1. EXJADE [Suspect]
     Indication: MYELODYSPLASTIC SYNDROME
     Dosage: 500 MG, DAILY
     Route: 048
     Dates: start: 20110223
  2. ZOCOR [Concomitant]
  3. CARDURA [Concomitant]
  4. ALLOPURINOL [Concomitant]
  5. PLETAL [Concomitant]
  6. PRILOSEC [Concomitant]

REACTIONS (2)
  - OEDEMA PERIPHERAL [None]
  - DIALYSIS [None]
